FAERS Safety Report 7023396-3 (Version None)
Quarter: 2010Q3

REPORT INFORMATION
  Report Type: 
  Country: None (occurrence: None)
  Receive Date: 20100930
  Receipt Date: 20100819
  Transmission Date: 20110219
  Serious: Yes (Death, Other)
  Sender: FDA-Public Use
  Company Number: US-BAXTER-2010BH001620

PATIENT
  Age: 40 Year
  Sex: Male

DRUGS (86)
  1. HEPARIN SODIUM INJECTION [Suspect]
     Indication: HAEMODIALYSIS
     Route: 042
     Dates: start: 20070926, end: 20071002
  2. HEPARIN SODIUM INJECTION [Suspect]
     Indication: PERITONEAL DIALYSIS
     Route: 042
     Dates: start: 20070926, end: 20071002
  3. HEPARIN SODIUM INJECTION [Suspect]
     Indication: INTRAVENOUS CATHETER MANAGEMENT
     Route: 042
     Dates: start: 20070926, end: 20071002
  4. HEPARIN SODIUM INJECTION [Suspect]
     Route: 040
     Dates: start: 20071008, end: 20071102
  5. HEPARIN SODIUM INJECTION [Suspect]
     Route: 040
     Dates: start: 20071008, end: 20071102
  6. HEPARIN SODIUM INJECTION [Suspect]
     Route: 040
     Dates: start: 20071008, end: 20071102
  7. HEPARIN SODIUM INJECTION [Suspect]
     Route: 040
     Dates: start: 20070516, end: 20070517
  8. HEPARIN SODIUM INJECTION [Suspect]
     Route: 040
     Dates: start: 20070516, end: 20070517
  9. HEPARIN SODIUM INJECTION [Suspect]
     Route: 040
     Dates: start: 20070516, end: 20070517
  10. HEPARIN SODIUM INJECTION [Suspect]
     Route: 033
     Dates: start: 20070926, end: 20071001
  11. HEPARIN SODIUM INJECTION [Suspect]
     Route: 033
     Dates: start: 20070926, end: 20071001
  12. HEPARIN SODIUM INJECTION [Suspect]
     Route: 033
     Dates: start: 20070926, end: 20071001
  13. HEPARIN SODIUM INJECTION [Suspect]
     Route: 042
     Dates: start: 20071229, end: 20071229
  14. HEPARIN SODIUM INJECTION [Suspect]
     Route: 042
     Dates: start: 20071229, end: 20071229
  15. HEPARIN SODIUM INJECTION [Suspect]
     Route: 042
     Dates: start: 20071229, end: 20071229
  16. HEPARIN SODIUM INJECTION [Suspect]
     Route: 042
     Dates: start: 20080223, end: 20080227
  17. HEPARIN SODIUM INJECTION [Suspect]
     Route: 042
     Dates: start: 20080223, end: 20080227
  18. HEPARIN SODIUM INJECTION [Suspect]
     Route: 042
     Dates: start: 20080223, end: 20080227
  19. HEPARIN SODIUM INJECTION [Suspect]
     Route: 042
     Dates: start: 20070516, end: 20070517
  20. HEPARIN SODIUM INJECTION [Suspect]
     Route: 042
     Dates: start: 20070516, end: 20070517
  21. HEPARIN SODIUM INJECTION [Suspect]
     Route: 042
     Dates: start: 20070516, end: 20070517
  22. HEPARIN SODIUM INJECTION [Suspect]
     Route: 065
     Dates: start: 20071001, end: 20071001
  23. HEPARIN SODIUM INJECTION [Suspect]
     Route: 065
     Dates: start: 20071001, end: 20071001
  24. HEPARIN SODIUM INJECTION [Suspect]
     Route: 065
     Dates: start: 20071001, end: 20071001
  25. HEPARIN SODIUM INJECTION [Suspect]
     Route: 042
     Dates: start: 20071231, end: 20071231
  26. HEPARIN SODIUM INJECTION [Suspect]
     Route: 042
     Dates: start: 20071231, end: 20071231
  27. HEPARIN SODIUM INJECTION [Suspect]
     Route: 042
     Dates: start: 20071231, end: 20071231
  28. HEPARIN SODIUM INJECTION [Suspect]
     Route: 042
     Dates: start: 20071008, end: 20071102
  29. HEPARIN SODIUM INJECTION [Suspect]
     Route: 042
     Dates: start: 20071008, end: 20071102
  30. HEPARIN SODIUM INJECTION [Suspect]
     Route: 042
     Dates: start: 20071008, end: 20071102
  31. HEPARIN SODIUM INJECTION [Suspect]
     Route: 042
     Dates: start: 20071001, end: 20071001
  32. HEPARIN SODIUM INJECTION [Suspect]
     Route: 042
     Dates: start: 20071001, end: 20071001
  33. HEPARIN SODIUM INJECTION [Suspect]
     Route: 042
     Dates: start: 20071001, end: 20071001
  34. HEPARIN SODIUM INJECTION [Suspect]
     Route: 042
     Dates: start: 20080107, end: 20080107
  35. HEPARIN SODIUM INJECTION [Suspect]
     Route: 042
     Dates: start: 20080107, end: 20080107
  36. HEPARIN SODIUM INJECTION [Suspect]
     Route: 042
     Dates: start: 20080107, end: 20080107
  37. HEPARIN SODIUM INJECTION [Suspect]
     Route: 040
     Dates: start: 20071105, end: 20071101
  38. HEPARIN SODIUM INJECTION [Suspect]
     Route: 040
     Dates: start: 20071105, end: 20071101
  39. HEPARIN SODIUM INJECTION [Suspect]
     Route: 040
     Dates: start: 20071105, end: 20071101
  40. HEPARIN SODIUM INJECTION [Suspect]
     Route: 042
     Dates: start: 20071105, end: 20071101
  41. HEPARIN SODIUM INJECTION [Suspect]
     Route: 042
     Dates: start: 20071105, end: 20071101
  42. HEPARIN SODIUM INJECTION [Suspect]
     Route: 042
     Dates: start: 20071105, end: 20071101
  43. HEPARIN SODIUM INJECTION [Suspect]
     Route: 010
     Dates: start: 20071001, end: 20071001
  44. HEPARIN SODIUM INJECTION [Suspect]
     Route: 010
     Dates: start: 20071001, end: 20071001
  45. HEPARIN SODIUM INJECTION [Suspect]
     Route: 010
     Dates: start: 20071001, end: 20071001
  46. HEPARIN SODIUM INJECTION [Suspect]
     Route: 040
     Dates: start: 20071120, end: 20071130
  47. HEPARIN SODIUM INJECTION [Suspect]
     Route: 040
     Dates: start: 20071120, end: 20071130
  48. HEPARIN SODIUM INJECTION [Suspect]
     Route: 040
     Dates: start: 20071120, end: 20071130
  49. HEPARIN SODIUM INJECTION [Suspect]
     Route: 010
     Dates: start: 20071221, end: 20071226
  50. HEPARIN SODIUM INJECTION [Suspect]
     Route: 010
     Dates: start: 20071221, end: 20071226
  51. HEPARIN SODIUM INJECTION [Suspect]
     Route: 010
     Dates: start: 20071221, end: 20071226
  52. HEPARIN SODIUM INJECTION [Suspect]
     Route: 042
     Dates: start: 20071120, end: 20071130
  53. HEPARIN SODIUM INJECTION [Suspect]
     Route: 042
     Dates: start: 20071120, end: 20071130
  54. HEPARIN SODIUM INJECTION [Suspect]
     Route: 042
     Dates: start: 20071120, end: 20071130
  55. HEPARIN SODIUM INJECTION [Suspect]
     Route: 010
     Dates: start: 20071221, end: 20071226
  56. HEPARIN SODIUM INJECTION [Suspect]
     Route: 010
     Dates: start: 20071221, end: 20071226
  57. HEPARIN SODIUM INJECTION [Suspect]
     Route: 010
     Dates: start: 20071221, end: 20071226
  58. HEPARIN SODIUM INJECTION [Suspect]
     Route: 010
     Dates: start: 20071229, end: 20071229
  59. HEPARIN SODIUM INJECTION [Suspect]
     Route: 010
     Dates: start: 20071229, end: 20071229
  60. HEPARIN SODIUM INJECTION [Suspect]
     Route: 010
     Dates: start: 20071229, end: 20071229
  61. HEPARIN SODIUM INJECTION [Suspect]
     Route: 010
     Dates: start: 20071230, end: 20071230
  62. HEPARIN SODIUM INJECTION [Suspect]
     Route: 010
     Dates: start: 20071230, end: 20071230
  63. HEPARIN SODIUM INJECTION [Suspect]
     Route: 010
     Dates: start: 20071230, end: 20071230
  64. HEPARIN SODIUM INJECTION [Suspect]
     Route: 040
     Dates: start: 20080223, end: 20080224
  65. HEPARIN SODIUM INJECTION [Suspect]
     Route: 040
     Dates: start: 20080223, end: 20080224
  66. HEPARIN SODIUM INJECTION [Suspect]
     Route: 040
     Dates: start: 20080223, end: 20080224
  67. HEPARIN SODIUM 5,000 UNITS IN DEXTROSE 5% [Suspect]
     Indication: PRODUCT USED FOR UNKNOWN INDICATION
     Route: 041
     Dates: start: 20080223, end: 20080223
  68. HEPARIN SODIUM 5,000 UNITS IN DEXTROSE 5% [Suspect]
     Route: 041
     Dates: start: 20080226, end: 20080227
  69. LORTAB [Concomitant]
     Indication: PRODUCT USED FOR UNKNOWN INDICATION
     Route: 065
  70. XANAX [Concomitant]
     Indication: PRODUCT USED FOR UNKNOWN INDICATION
     Route: 065
  71. PAXIL [Concomitant]
     Indication: PRODUCT USED FOR UNKNOWN INDICATION
     Route: 065
  72. ISOSORBIDE MONONITRATE [Concomitant]
     Indication: PRODUCT USED FOR UNKNOWN INDICATION
     Route: 065
  73. ESOMEPRAZOLE MAGNESIUM [Concomitant]
     Indication: PRODUCT USED FOR UNKNOWN INDICATION
     Route: 065
  74. CLONIDINE [Concomitant]
     Indication: PRODUCT USED FOR UNKNOWN INDICATION
     Route: 065
  75. AMBIEN [Concomitant]
     Indication: PRODUCT USED FOR UNKNOWN INDICATION
     Route: 065
  76. CHANTIX [Concomitant]
     Indication: PRODUCT USED FOR UNKNOWN INDICATION
     Route: 065
  77. LISINOPRIL [Concomitant]
     Indication: PRODUCT USED FOR UNKNOWN INDICATION
     Route: 065
  78. COREG [Concomitant]
     Indication: PRODUCT USED FOR UNKNOWN INDICATION
     Route: 065
  79. ALBUTEROL SULFATE AND IPRATROPIUM BROMIDE [Concomitant]
     Indication: PRODUCT USED FOR UNKNOWN INDICATION
     Route: 055
  80. HYDRALAZINE HYDROCHLORIDE [Concomitant]
     Indication: PRODUCT USED FOR UNKNOWN INDICATION
     Route: 065
  81. PROCARDIA XL [Concomitant]
     Indication: PRODUCT USED FOR UNKNOWN INDICATION
     Route: 065
  82. ATORVASTATIN CALCIUM [Concomitant]
     Indication: PRODUCT USED FOR UNKNOWN INDICATION
     Route: 065
  83. VENOFER [Concomitant]
     Indication: PRODUCT USED FOR UNKNOWN INDICATION
     Route: 042
  84. FERRLECIT                               /USA/ [Concomitant]
     Indication: PRODUCT USED FOR UNKNOWN INDICATION
     Route: 042
  85. EPOGEN [Concomitant]
     Indication: PRODUCT USED FOR UNKNOWN INDICATION
     Route: 042
  86. SALINE [Concomitant]
     Indication: PRODUCT USED FOR UNKNOWN INDICATION
     Route: 042

REACTIONS (28)
  - ABDOMINAL PAIN [None]
  - ACUTE RESPIRATORY FAILURE [None]
  - AGITATION [None]
  - ARTERIOVENOUS FISTULA THROMBOSIS [None]
  - CEREBRAL INFARCTION [None]
  - CHEST PAIN [None]
  - COMA [None]
  - DECREASED APPETITE [None]
  - DELAYED RECOVERY FROM ANAESTHESIA [None]
  - DEVICE RELATED SEPSIS [None]
  - DIARRHOEA [None]
  - DIZZINESS [None]
  - ENCEPHALOPATHY [None]
  - ENDOCARDITIS [None]
  - FLUID OVERLOAD [None]
  - HYPERTENSION [None]
  - HYPOAESTHESIA [None]
  - HYPOTENSION [None]
  - NAUSEA [None]
  - PAIN [None]
  - PNEUMONIA [None]
  - PRURITUS [None]
  - RENAL FAILURE [None]
  - RESTLESSNESS [None]
  - SEPTIC SHOCK [None]
  - STAPHYLOCOCCAL INFECTION [None]
  - TACHYCARDIA [None]
  - VOMITING [None]
